FAERS Safety Report 4333312-0 (Version None)
Quarter: 2004Q2

REPORT INFORMATION
  Report Type: 
  Country: None (occurrence: None)
  Receive Date: 20040405
  Receipt Date: 20040324
  Transmission Date: 20050107
  Serious: Yes (Hospitalization)
  Sender: FDA-Public Use
  Company Number: FLUV00304000816

PATIENT
  Age: 20 Year
  Sex: Female
  Weight: 58 kg

DRUGS (12)
  1. FLOXYFRAL 100 (FLUVOXAMINE MALEATE) [Suspect]
     Indication: DEPRESSION
     Dosage: 100 MG QD PO
     Route: 048
     Dates: start: 20030909, end: 20030921
  2. CLOZAPINE PANPHARMA (CLOZAPINE) [Suspect]
     Indication: PSYCHOTIC DISORDER
     Dosage: SEE IMAGE
     Route: 048
     Dates: start: 20031028, end: 20030101
  3. CLOZAPINE PANPHARMA (CLOZAPINE) [Suspect]
     Indication: PSYCHOTIC DISORDER
     Dosage: SEE IMAGE
     Route: 048
     Dates: start: 20000101, end: 20030725
  4. CLOZAPINE PANPHARMA (CLOZAPINE) [Suspect]
     Indication: PSYCHOTIC DISORDER
     Dosage: SEE IMAGE
     Route: 048
     Dates: start: 20030726, end: 20030811
  5. CLOZAPINE PANPHARMA (CLOZAPINE) [Suspect]
     Indication: PSYCHOTIC DISORDER
     Dosage: SEE IMAGE
     Route: 048
     Dates: start: 20030812, end: 20030911
  6. CLOZAPINE PANPHARMA (CLOZAPINE) [Suspect]
     Indication: PSYCHOTIC DISORDER
     Dosage: SEE IMAGE
     Route: 048
     Dates: start: 20030912, end: 20030921
  7. CLOZAPINE PANPHARMA (CLOZAPINE) [Suspect]
     Indication: PSYCHOTIC DISORDER
     Dosage: SEE IMAGE
     Route: 048
     Dates: start: 20030922, end: 20030924
  8. CLOZAPINE PANPHARMA (CLOZAPINE) [Suspect]
     Indication: PSYCHOTIC DISORDER
     Dosage: SEE IMAGE
     Route: 048
     Dates: start: 20030925, end: 20031005
  9. CLOZAPINE PANPHARMA (CLOZAPINE) [Suspect]
     Indication: PSYCHOTIC DISORDER
     Dosage: SEE IMAGE
     Route: 048
     Dates: start: 20031006, end: 20031021
  10. CLOZAPINE PANPHARMA (CLOZAPINE) [Suspect]
     Indication: PSYCHOTIC DISORDER
     Dosage: SEE IMAGE
     Route: 048
     Dates: start: 20031021, end: 20031027
  11. CLOZAPINE PANPHARMA (CLOZAPINE) [Suspect]
     Indication: PSYCHOTIC DISORDER
     Dosage: SEE IMAGE
     Route: 048
     Dates: start: 20031001
  12. LYSANXIA 10 MG (PRAZEPAM) [Concomitant]

REACTIONS (5)
  - DEPRESSION [None]
  - OVERDOSE [None]
  - PSYCHOTIC DISORDER [None]
  - SALIVARY HYPERSECRETION [None]
  - SOMNOLENCE [None]
